FAERS Safety Report 5711694-2 (Version None)
Quarter: 2008Q2

REPORT INFORMATION
  Report Type: 
  Country: None (occurrence: None)
  Receive Date: 20080421
  Receipt Date: 20080410
  Transmission Date: 20081010
  Serious: Yes (Hospitalization)
  Sender: FDA-Public Use
  Company Number: PHBS2008DE03964

PATIENT
  Sex: Male

DRUGS (2)
  1. PANTOZOL [Suspect]
     Indication: ABDOMINAL DISCOMFORT
     Dosage: 20 MG, QD
     Route: 048
     Dates: start: 20080201
  2. GLEEVEC [Suspect]
     Indication: LEUKAEMIA
     Dates: start: 20000101

REACTIONS (2)
  - ANAEMIA [None]
  - DRUG INTERACTION [None]
